FAERS Safety Report 25070311 (Version 1)
Quarter: 2025Q1

REPORT INFORMATION
  Report Type: Spontaneous
  Country: ES (occurrence: ES)
  Receive Date: 20250312
  Receipt Date: 20250312
  Transmission Date: 20250408
  Serious: Yes (Other)
  Sender: NOVO NORDISK
  Company Number: ES-NOVOPROD-1380357

PATIENT
  Age: 62 Year
  Sex: Female

DRUGS (2)
  1. WEGOVY [Suspect]
     Active Substance: SEMAGLUTIDE
     Indication: Product used for unknown indication
     Dates: start: 202501
  2. WEGOVY [Suspect]
     Active Substance: SEMAGLUTIDE

REACTIONS (4)
  - Optic ischaemic neuropathy [Unknown]
  - Visual acuity reduced [Unknown]
  - Vision blurred [Unknown]
  - Product use issue [Unknown]
